FAERS Safety Report 16684234 (Version 1)
Quarter: 2019Q3

REPORT INFORMATION
  Report Type: Report from Study
  Country: CA (occurrence: CA)
  Receive Date: 20190808
  Receipt Date: 20190808
  Transmission Date: 20191004
  Serious: Yes (Other)
  Sender: FDA-Public Use
  Company Number: CA-JNJFOC-20190807630

PATIENT
  Age: 60 Year
  Sex: Male
  Weight: 85.5 kg

DRUGS (1)
  1. REMICADE [Suspect]
     Active Substance: INFLIXIMAB
     Indication: PSORIASIS
     Dosage: STRENGTH = 100 MG
     Route: 042
     Dates: start: 20120808

REACTIONS (1)
  - Throat cancer [Unknown]
